FAERS Safety Report 12290469 (Version 1)
Quarter: 2016Q2

REPORT INFORMATION
  Report Type: Spontaneous
  Country: US (occurrence: US)
  Receive Date: 20160421
  Receipt Date: 20160421
  Transmission Date: 20160815
  Serious: No
  Sender: FDA-Public Use
  Company Number: US-ENDO PHARMACEUTICALS INC.-2015-002685

PATIENT
  Age: 77 Year
  Sex: Female
  Weight: 64.01 kg

DRUGS (5)
  1. CLONIDINE HCL TABLETS 0.1MG [Suspect]
     Active Substance: CLONIDINE HYDROCHLORIDE
     Route: 048
     Dates: start: 201508
  2. CLONIDINE HCL TABLETS 0.1MG [Suspect]
     Active Substance: CLONIDINE HYDROCHLORIDE
     Indication: HYPERTENSION
     Route: 048
     Dates: start: 201508, end: 201508
  3. ATENOLOL. [Concomitant]
     Active Substance: ATENOLOL
     Indication: HYPERTENSION
  4. CLONIDINE. [Concomitant]
     Active Substance: CLONIDINE
     Indication: HYPERTENSION
  5. LOSARTAN. [Concomitant]
     Active Substance: LOSARTAN
     Indication: HYPERTENSION

REACTIONS (5)
  - Drug ineffective [Unknown]
  - Dyspnoea [Recovered/Resolved]
  - Neck pain [Unknown]
  - Blood pressure increased [Recovered/Resolved]
  - Peripheral swelling [Unknown]

NARRATIVE: CASE EVENT DATE: 201508
